FAERS Safety Report 10230382 (Version 1)
Quarter: 2014Q2

REPORT INFORMATION
  Report Type: Spontaneous
  Country: US (occurrence: US)
  Receive Date: 20140611
  Receipt Date: 20140611
  Transmission Date: 20141212
  Serious: No
  Sender: FDA-Public Use
  Company Number: US-INCYTE CORPORATION-2014IN000487

PATIENT
  Age: 76 Year
  Sex: Male

DRUGS (4)
  1. JAKAFI [Suspect]
     Indication: MYELOFIBROSIS
     Dosage: 10 MG, BID
     Route: 048
  2. TOPROL [Concomitant]
  3. LEVOTHYROXINE [Concomitant]
  4. FINASTERIDE [Concomitant]

REACTIONS (2)
  - Pruritus generalised [Unknown]
  - Oral discomfort [Unknown]
